FAERS Safety Report 7381984-9 (Version None)
Quarter: 2011Q1

REPORT INFORMATION
  Report Type: 
  Country: None (occurrence: None)
  Receive Date: 20110329
  Receipt Date: 20110318
  Transmission Date: 20110831
  Serious: Yes (Other)
  Sender: FDA-Public Use
  Company Number: US-BAXTER-2011BH008089

PATIENT
  Sex: Female

DRUGS (3)
  1. FLUOROURACIL [Suspect]
     Indication: BREAST CANCER
     Route: 040
  2. DOXORUBICIN [Suspect]
     Indication: BREAST CANCER
     Route: 042
  3. CYCLOPHOSPHAMIDE [Suspect]
     Indication: BREAST CANCER
     Route: 042

REACTIONS (1)
  - DRUG EXPOSURE DURING PREGNANCY [None]
